FAERS Safety Report 10556935 (Version 2)
Quarter: 2014Q4

REPORT INFORMATION
  Report Type: Other
  Country: GB (occurrence: GB)
  Receive Date: 20141031
  Receipt Date: 20141126
  Transmission Date: 20150529
  Serious: Yes (Hospitalization, Other)
  Sender: FDA-Public Use
  Company Number: GB-SHIRE-GB201407415

PATIENT
  Age: 2 Year
  Sex: Male

DRUGS (2)
  1. ELAPRASE [Suspect]
     Active Substance: IDURSULFASE
     Dosage: 12 MG (TWO VIALS), OTHER (ALTERNATING WITH 6 MG WEEKLY)
     Route: 041
     Dates: start: 20141013
  2. ELAPRASE [Suspect]
     Active Substance: IDURSULFASE
     Indication: MUCOPOLYSACCHARIDOSIS II
     Dosage: 6 MG (1 VIAL), OTHER (ALTERNATING WITH 12 MG WEEKLY)
     Route: 041
     Dates: start: 20141013

REACTIONS (1)
  - Lower respiratory tract infection [Recovering/Resolving]

NARRATIVE: CASE EVENT DATE: 201410
